FAERS Safety Report 8799641 (Version 2)
Quarter: 2013Q4

REPORT INFORMATION
  Report Type: Spontaneous
  Country: NL (occurrence: NL)
  Receive Date: 20120919
  Receipt Date: 20131031
  Transmission Date: 20140711
  Serious: Yes (Hospitalization)
  Sender: FDA-Public Use
  Company Number: NL-009507513-1209NLD005237

PATIENT
  Age: 70 Year
  Sex: Male
  Weight: 66 kg

DRUGS (3)
  1. INEGY [Suspect]
     Indication: HYPERCHOLESTEROLAEMIA
     Dosage: UNK
     Dates: start: 20100607, end: 20120810
  2. PERSANTIN RETARD [Concomitant]
     Dosage: UNK
  3. CARBASPIRIN CALCIUM [Concomitant]
     Dosage: UNK

REACTIONS (3)
  - Prostatic specific antigen increased [Unknown]
  - Cough [Unknown]
  - Muscular weakness [Unknown]
